FAERS Safety Report 23357317 (Version 1)
Quarter: 2024Q1

REPORT INFORMATION
  Report Type: Spontaneous
  Country: SK (occurrence: SK)
  Receive Date: 20240102
  Receipt Date: 20240102
  Transmission Date: 20240409
  Serious: No
  Sender: FDA-Public Use
  Company Number: SK-EMA-DD-20231214-7482689-091725

PATIENT
  Age: 34 Year
  Sex: Male

DRUGS (10)
  1. TOPAMAX [Suspect]
     Active Substance: TOPIRAMATE
     Indication: Partial seizures
     Route: 065
  2. PHENYTOIN [Suspect]
     Active Substance: PHENYTOIN
     Indication: Generalised tonic-clonic seizure
     Dosage: 500 MILLIGRAM DAILY; REDUCED TO 400 MG PER DAY
     Route: 065
     Dates: start: 202209
  3. PHENYTOIN [Suspect]
     Active Substance: PHENYTOIN
     Indication: Seizure
     Dosage: 400 MILLIGRAM, QD
     Route: 065
  4. VALPROATE SODIUM [Suspect]
     Active Substance: VALPROATE SODIUM
     Indication: Generalised tonic-clonic seizure
     Dosage: 3500 MILLIGRAM DAILY;
     Route: 065
     Dates: start: 202209
  5. CENOBAMATE [Suspect]
     Active Substance: CENOBAMATE
     Indication: Generalised tonic-clonic seizure
     Dosage: 400 MILLIGRAM, QD (INCREASING DOSE UP TO A DOSE OF  400 MG PER DAY)
     Route: 065
     Dates: start: 202209
  6. LAMOTRIGINE [Suspect]
     Active Substance: LAMOTRIGINE
     Indication: Partial seizures
     Route: 065
  7. CLOBAZAM [Suspect]
     Active Substance: CLOBAZAM
     Indication: Generalised tonic-clonic seizure
     Dosage: 30 MILLIGRAM, QD, REDUCE TO 20 MG PER DAY
     Route: 065
     Dates: start: 202209
  8. CLOBAZAM [Suspect]
     Active Substance: CLOBAZAM
     Indication: Seizure
     Dosage: 20 MILLIGRAM, QD
  9. LEVETIRACETAM [Suspect]
     Active Substance: LEVETIRACETAM
     Indication: Generalised tonic-clonic seizure
     Dosage: 4000 MILLIGRAM DAILY;
     Route: 065
     Dates: start: 202209
  10. PREGABALIN [Suspect]
     Active Substance: PREGABALIN
     Indication: Partial seizures
     Route: 065

REACTIONS (2)
  - Sedation [Recovered/Resolved]
  - Hyperammonaemia [Recovered/Resolved]
